FAERS Safety Report 24128463 (Version 1)
Quarter: 2024Q3

REPORT INFORMATION
  Report Type: Spontaneous
  Country: IT (occurrence: IT)
  Receive Date: 20240723
  Receipt Date: 20240723
  Transmission Date: 20241017
  Serious: Yes (Other)
  Sender: AMERICAN REGENT
  Company Number: IT-AMERICAN REGENT INC-2024002791

PATIENT
  Age: 44 Year
  Sex: Female

DRUGS (1)
  1. FERINJECT [Suspect]
     Active Substance: FERRIC CARBOXYMALTOSE
     Indication: Iron deficiency
     Dosage: LAST ADMINISTRATION PRIOR TO THE ADVERSE EVENTS: 18-JUN-2024. (500 MG,1 IN 1 CYCLICAL)
     Route: 042
     Dates: start: 20240618, end: 20240618

REACTIONS (2)
  - Cough [Recovered/Resolved]
  - Dyspnoea [Recovered/Resolved]

NARRATIVE: CASE EVENT DATE: 20240618
